FAERS Safety Report 17260673 (Version 1)
Quarter: 2020Q1

REPORT INFORMATION
  Report Type: Spontaneous
  Country: US (occurrence: US)
  Receive Date: 20200113
  Receipt Date: 20200113
  Transmission Date: 20200409
  Serious: Yes (Hospitalization)
  Sender: FDA-Public Use
  Company Number: US-ROCHE-2520610

PATIENT
  Age: 65 Year
  Sex: Male

DRUGS (8)
  1. OZEMPIC [Concomitant]
     Active Substance: SEMAGLUTIDE
  2. METOPROLOL. [Concomitant]
     Active Substance: METOPROLOL
  3. IRBESARTAN. [Concomitant]
     Active Substance: IRBESARTAN
  4. PREGABALIN. [Concomitant]
     Active Substance: PREGABALIN
  5. AMLODIPINE [Concomitant]
     Active Substance: AMLODIPINE BESYLATE
  6. PREDNISONE. [Concomitant]
     Active Substance: PREDNISONE
  7. TRAMADOL. [Concomitant]
     Active Substance: TRAMADOL
  8. ESBRIET [Suspect]
     Active Substance: PIRFENIDONE
     Indication: IDIOPATHIC PULMONARY FIBROSIS
     Route: 048
     Dates: start: 20181214

REACTIONS (2)
  - Nausea [Unknown]
  - Myocardial infarction [Unknown]

NARRATIVE: CASE EVENT DATE: 20200103
